FAERS Safety Report 9585055 (Version 1)
Quarter: 2013Q4

REPORT INFORMATION
  Report Type: Spontaneous
  Country: US (occurrence: US)
  Receive Date: 20131002
  Receipt Date: 20131002
  Transmission Date: 20140711
  Serious: No
  Sender: FDA-Public Use
  Company Number: US-AMGEN-USASP2013061829

PATIENT
  Age: 58 Year
  Sex: Female
  Weight: 80.73 kg

DRUGS (12)
  1. ENBREL [Suspect]
     Indication: PSORIATIC ARTHROPATHY
     Dosage: UNK
     Route: 065
  2. ALPHA LIPOIC [Concomitant]
     Dosage: UNK
  3. BENADRYL                           /00000402/ [Concomitant]
     Dosage: UNK
  4. CALCIUM [Concomitant]
     Dosage: UNK
  5. COQ 10 [Concomitant]
     Dosage: UNK
  6. LEXAPRO [Concomitant]
     Dosage: UNK
  7. LIPITOR [Concomitant]
     Dosage: UNK
  8. METFORMIN [Concomitant]
     Dosage: UNK
  9. NEXIUM                             /01479303/ [Concomitant]
     Dosage: UNK
  10. NORVASC [Concomitant]
     Dosage: UNK
  11. ZANTAC [Concomitant]
     Dosage: UNK
  12. ZYRTEC [Concomitant]
     Dosage: UNK

REACTIONS (1)
  - Nasopharyngitis [Not Recovered/Not Resolved]
